FAERS Safety Report 21657689 (Version 2)
Quarter: 2022Q4

REPORT INFORMATION
  Report Type: Spontaneous
  Country: GB (occurrence: GB)
  Receive Date: 20221129
  Receipt Date: 20221220
  Transmission Date: 20230113
  Serious: Yes (Other)
  Sender: FDA-Public Use
  Company Number: GB-BAYER-2022A161195

PATIENT
  Sex: Female

DRUGS (2)
  1. MIRENA [Suspect]
     Active Substance: LEVONORGESTREL
     Indication: Postmenopausal haemorrhage
     Dosage: 20?G/DAY
     Route: 015
     Dates: start: 20221107
  2. MIRENA [Suspect]
     Active Substance: LEVONORGESTREL
     Indication: Endometrial hyperplasia

REACTIONS (3)
  - Postmenopausal haemorrhage [None]
  - Off label use of device [None]
  - Therapeutic product ineffective for unapproved indication [None]

NARRATIVE: CASE EVENT DATE: 20221107
